FAERS Safety Report 5933768-3 (Version None)
Quarter: 2008Q4

REPORT INFORMATION
  Report Type: 
  Country: None (occurrence: None)
  Receive Date: 20081029
  Receipt Date: 20081020
  Transmission Date: 20090506
  Serious: Yes (Death)
  Sender: FDA-Public Use
  Company Number: FR-ASTRAZENECA-2008CG01534

PATIENT
  Age: 30366 Day
  Sex: Female
  Weight: 60 kg

DRUGS (7)
  1. FASLODEX [Suspect]
     Indication: BREAST CANCER FEMALE
     Dosage: DAY 1
     Route: 030
     Dates: start: 20080307, end: 20080307
  2. FASLODEX [Suspect]
     Dosage: DAY 15
     Route: 030
     Dates: start: 20080321, end: 20080321
  3. FASLODEX [Suspect]
     Route: 030
     Dates: start: 20080404, end: 20080828
  4. HYTACAND [Concomitant]
     Indication: HYPERTENSION
     Route: 048
     Dates: start: 20080306
  5. CELIPROLOL [Concomitant]
     Indication: HYPERTENSION
     Route: 048
     Dates: start: 20080306
  6. CIPROFIBRATE [Concomitant]
     Indication: HYPERCHOLESTEROLAEMIA
     Route: 048
     Dates: start: 20080306
  7. DAFLON [Concomitant]
     Indication: VENOUS INSUFFICIENCY
     Route: 048
     Dates: start: 20080306

REACTIONS (1)
  - CARDIAC ARREST [None]
